FAERS Safety Report 8532873-5 (Version None)
Quarter: 2012Q3

REPORT INFORMATION
  Report Type: 
  Country: None (occurrence: None)
  Receive Date: 20120724
  Receipt Date: 20120629
  Transmission Date: 20120928
  Serious: No
  Sender: FDA-Public Use
  Company Number: US-ROXANE LABORATORIES, INC.-2012-RO-01509RO

PATIENT
  Sex: Female

DRUGS (2)
  1. PREDNISONE [Suspect]
  2. HUMIRA [Suspect]
     Route: 058
     Dates: start: 20060131

REACTIONS (1)
  - BODY FAT DISORDER [None]
